FAERS Safety Report 4504930-1 (Version None)
Quarter: 2004Q4

REPORT INFORMATION
  Report Type: 
  Country: None (occurrence: None)
  Receive Date: 20041020
  Receipt Date: 20040913
  Transmission Date: 20050328
  Serious: No
  Sender: FDA-Public Use
  Company Number: 2004-09-0703

PATIENT

DRUGS (2)
  1. CLARINEX [Suspect]
     Dosage: 1 QD ORAL
     Route: 048
  2. ANTIDEPRESSANTS (NOS) [Concomitant]

REACTIONS (1)
  - DEPRESSED MOOD [None]
